FAERS Safety Report 21254946 (Version 1)
Quarter: 2022Q3

REPORT INFORMATION
  Report Type: Spontaneous
  Country: US (occurrence: None)
  Receive Date: 20220824
  Receipt Date: 20220824
  Transmission Date: 20221027
  Serious: No
  Sender: FDA-Public Use
  Company Number: None

PATIENT
  Age: 22 Year
  Sex: Female

DRUGS (1)
  1. DUPIXENT [Suspect]
     Active Substance: DUPILUMAB
     Indication: Psoriasis
     Dosage: FREQUENCY : EVERY OTHER WEEK;?
     Route: 058
     Dates: start: 202112

REACTIONS (4)
  - Drug delivery system malfunction [None]
  - Device physical property issue [None]
  - Drug dose omission by device [None]
  - Device leakage [None]

NARRATIVE: CASE EVENT DATE: 20220823
